FAERS Safety Report 7415724-1 (Version None)
Quarter: 2011Q2

REPORT INFORMATION
  Report Type: 
  Country: None (occurrence: None)
  Receive Date: 20110414
  Receipt Date: 20100830
  Transmission Date: 20111010
  Serious: Yes (Other)
  Sender: FDA-Public Use
  Company Number: US-BRISTOL-MYERS SQUIBB COMPANY-15261282

PATIENT
  Age: 37 Year
  Sex: Male

DRUGS (2)
  1. SPRYCEL [Suspect]
     Dates: start: 20100814
  2. HYDREA [Suspect]
     Dates: end: 20100816

REACTIONS (5)
  - NAUSEA [None]
  - DIARRHOEA [None]
  - WHITE BLOOD CELL COUNT DECREASED [None]
  - RASH PRURITIC [None]
  - ARTHRALGIA [None]
